FAERS Safety Report 14756188 (Version 2)
Quarter: 2018Q2

REPORT INFORMATION
  Report Type: Spontaneous
  Country: US (occurrence: US)
  Receive Date: 20180413
  Receipt Date: 20180425
  Transmission Date: 20180711
  Serious: No
  Sender: FDA-Public Use
  Company Number: US-BAYER-2018-066192

PATIENT
  Age: 67 Year
  Sex: Male
  Weight: 82.54 kg

DRUGS (3)
  1. HYDROCODONE [Concomitant]
     Active Substance: HYDROCODONE
  2. MIRALAX [Suspect]
     Active Substance: POLYETHYLENE GLYCOL 3350
     Indication: GASTROINTESTINAL DISORDER
     Dosage: 1 DF, UNK
     Route: 048
     Dates: start: 2016
  3. MIRALAX [Suspect]
     Active Substance: POLYETHYLENE GLYCOL 3350
     Indication: GASTROINTESTINAL DISORDER
     Dosage: 1 DF, UNK
     Route: 048
     Dates: start: 20180413

REACTIONS (14)
  - Drug ineffective [Unknown]
  - Poor quality drug administered [Unknown]
  - Circumstance or information capable of leading to medication error [Unknown]
  - Dysgeusia [Unknown]
  - Product use in unapproved indication [Unknown]
  - Poor quality drug administered [Unknown]
  - Incorrect drug administration duration [Unknown]
  - Incorrect drug administration duration [Unknown]
  - Abdominal discomfort [Not Recovered/Not Resolved]
  - Product prescribing issue [Unknown]
  - Dyspepsia [Unknown]
  - Product solubility abnormal [Unknown]
  - Product taste abnormal [Unknown]
  - Off label use [Unknown]

NARRATIVE: CASE EVENT DATE: 2016
